FAERS Safety Report 5573853-1 (Version None)
Quarter: 2007Q4

REPORT INFORMATION
  Report Type: 
  Country: None (occurrence: None)
  Receive Date: 20071226
  Receipt Date: 20071213
  Transmission Date: 20080405
  Serious: Yes (Other)
  Sender: FDA-Public Use
  Company Number: BE-ASTRAZENECA-2007AC02465

PATIENT
  Sex: Female

DRUGS (1)
  1. ZOMIG [Suspect]
     Dosage: 2-3 TIMES A WEEK
     Route: 048
     Dates: end: 20071201

REACTIONS (1)
  - OPTIC NEURITIS [None]
